FAERS Safety Report 19623576 (Version 1)
Quarter: 2021Q3

REPORT INFORMATION
  Report Type: Spontaneous
  Country: US (occurrence: US)
  Receive Date: 20210728
  Receipt Date: 20210728
  Transmission Date: 20211014
  Serious: No
  Sender: FDA-Public Use
  Company Number: US-009507513-2107USA007573

PATIENT
  Age: 67 Year
  Sex: Female

DRUGS (2)
  1. KEYTRUDA [Suspect]
     Active Substance: PEMBROLIZUMAB
  2. LENVATINIB MESYLATE [Suspect]
     Active Substance: LENVATINIB MESYLATE
     Indication: UTERINE CANCER
     Dosage: UNK
     Route: 048
     Dates: start: 20210612

REACTIONS (6)
  - Dry skin [Unknown]
  - Oral pain [Unknown]
  - Lip dry [Unknown]
  - Nail pigmentation [Unknown]
  - Chapped lips [Unknown]
  - Fatigue [Unknown]
